FAERS Safety Report 8624078-4 (Version None)
Quarter: 2012Q3

REPORT INFORMATION
  Report Type: 
  Country: None (occurrence: None)
  Receive Date: 20120827
  Receipt Date: 20120815
  Transmission Date: 20120928
  Serious: Yes (Disabling, Other)
  Sender: FDA-Public Use
  Company Number: US-009507513-0706USA03527

PATIENT

DRUGS (8)
  1. FOSAMAX PLUS D [Suspect]
     Indication: OSTEOPOROSIS
     Route: 048
  2. FOSAMAX [Suspect]
  3. HORMONES (UNSPECIFIED) [Concomitant]
     Dates: start: 19950101
  4. FOSAMAX [Suspect]
     Indication: OSTEOPENIA
     Dosage: 10 MG, UNK
     Route: 048
     Dates: start: 20000929, end: 20050729
  5. ANTINEOPLASTIC (UNSPECIFIED) [Concomitant]
     Dates: start: 20070101, end: 20070901
  6. FOSAMAX [Suspect]
     Dosage: 70 MG, UNK
     Route: 048
     Dates: start: 20050920, end: 20071210
  7. FOSAMAX PLUS D [Suspect]
     Indication: OSTEOPENIA
  8. FOSAMAX [Suspect]
     Indication: OSTEOPOROSIS
     Dosage: 70 MG, QW
     Route: 048
     Dates: start: 19950101, end: 20050420

REACTIONS (61)
  - FEMUR FRACTURE [None]
  - BRAIN NEOPLASM MALIGNANT [None]
  - OESOPHAGEAL CARCINOMA [None]
  - UPPER RESPIRATORY TRACT INFECTION [None]
  - LYMPHADENITIS [None]
  - TOOTH LOSS [None]
  - CHOLELITHIASIS [None]
  - DEPRESSION [None]
  - CONSTIPATION [None]
  - OSTEOPOROSIS [None]
  - ANXIETY [None]
  - BLOOD CHOLESTEROL INCREASED [None]
  - DENTAL CARIES [None]
  - HELICOBACTER INFECTION [None]
  - STRESS [None]
  - OSTEONECROSIS OF JAW [None]
  - UPPER RESPIRATORY TRACT CONGESTION [None]
  - BRONCHITIS [None]
  - SINUS DISORDER [None]
  - DYSPHAGIA [None]
  - CENTRAL NERVOUS SYSTEM LYMPHOMA [None]
  - BIOPSY BRAIN [None]
  - HILAR LYMPHADENOPATHY [None]
  - DIPLOPIA [None]
  - MUSCULAR WEAKNESS [None]
  - DYSPNOEA [None]
  - DYSPEPSIA [None]
  - PAIN IN JAW [None]
  - GASTROOESOPHAGEAL REFLUX DISEASE [None]
  - PANCYTOPENIA [None]
  - OVERDOSE [None]
  - HYSTERECTOMY [None]
  - JOINT STIFFNESS [None]
  - ARTHROPATHY [None]
  - MERYCISM [None]
  - GASTRIC ULCER [None]
  - LOW TURNOVER OSTEOPATHY [None]
  - OSTEOPENIA [None]
  - ABSCESS [None]
  - GINGIVAL DISORDER [None]
  - REGURGITATION [None]
  - ADVERSE EVENT [None]
  - BALANCE DISORDER [None]
  - JOINT SWELLING [None]
  - SINUSITIS [None]
  - TOOTHACHE [None]
  - INSOMNIA [None]
  - ACUTE SINUSITIS [None]
  - HYPOAESTHESIA [None]
  - OESOPHAGEAL DISCOMFORT [None]
  - STRESS FRACTURE [None]
  - TRANSFUSION [None]
  - NASOPHARYNGITIS [None]
  - ORAL INFECTION [None]
  - COUGH [None]
  - ONYCHOMYCOSIS [None]
  - CHEST DISCOMFORT [None]
  - ABNORMAL LOSS OF WEIGHT [None]
  - THYROID MASS [None]
  - ABDOMINAL PAIN LOWER [None]
  - RASH [None]
